FAERS Safety Report 18292633 (Version 2)
Quarter: 2020Q3

REPORT INFORMATION
  Report Type: Report from Study
  Country: IN (occurrence: IN)
  Receive Date: 20200921
  Receipt Date: 20200929
  Transmission Date: 20201103
  Serious: Yes (Death)
  Sender: FDA-Public Use
  Company Number: IN-PFIZER INC-2020354437

PATIENT
  Age: 29 Year
  Sex: Male
  Weight: 76 kg

DRUGS (1)
  1. INOTUZUMAB OZOGAMICIN [Suspect]
     Active Substance: INOTUZUMAB OZOGAMICIN
     Indication: B-CELL TYPE ACUTE LEUKAEMIA
     Dosage: 1.8 MG/SQMTR (MG/M2/CYCLE, ADMINISTERED IN 3 DIVIDED DOSE)
     Route: 042
     Dates: start: 20200826, end: 20200915

REACTIONS (2)
  - SARS-CoV-2 test positive [Fatal]
  - Haemorrhage intracranial [Fatal]

NARRATIVE: CASE EVENT DATE: 20200912
